FAERS Safety Report 8893370 (Version 3)
Quarter: 2013Q2

REPORT INFORMATION
  Report Type: Spontaneous
  Country: US (occurrence: US)
  Receive Date: 20121107
  Receipt Date: 20130521
  Transmission Date: 20140414
  Serious: Yes (Hospitalization)
  Sender: FDA-Public Use
  Company Number: US-AMGEN-USASP2011050975

PATIENT
  Age: 51 Year
  Sex: Female

DRUGS (13)
  1. ENBREL [Suspect]
     Indication: RHEUMATOID ARTHRITIS
     Dosage: 50 MG, QWK
     Dates: start: 201109, end: 20130311
  2. ANTIINFLAMMATORY/ANTIRHEUMATIC PRODUCTS [Suspect]
     Dosage: UNK
     Dates: start: 20130326, end: 20130401
  3. METHOTREXATE [Concomitant]
     Indication: RHEUMATOID ARTHRITIS
     Dosage: 20 MG, QWK
     Route: 048
     Dates: start: 2008
  4. FOLIC ACID [Concomitant]
     Dosage: UNK
  5. VICODIN [Concomitant]
     Dosage: UNK
  6. SERTRALINE [Concomitant]
     Indication: AFFECTIVE DISORDER
     Dosage: 5 MG, BID
     Dates: start: 200905
  7. METOCLOPRAMIDE [Concomitant]
     Dosage: 10 MG, UNK
     Route: 042
  8. KETOROLAC [Concomitant]
     Dosage: 30 MG, UNK
     Route: 042
  9. DIPHENHYDRAMINE [Concomitant]
     Dosage: 25 MG, UNK
     Route: 042
  10. HEPARIN [Concomitant]
     Dosage: 5000 UNIT, BID
     Route: 058
  11. ACETAMINOPHEN [Concomitant]
     Dosage: 600 MG, EVERY SIX HOURS
     Route: 048
  12. ZOLOFT [Concomitant]
     Dosage: UNK
  13. CELEBREX [Concomitant]
     Indication: RHEUMATOID ARTHRITIS
     Dosage: 200 MG, UNK

REACTIONS (17)
  - Electrocardiogram abnormal [Unknown]
  - Headache [Recovering/Resolving]
  - Influenza like illness [Unknown]
  - Nausea [Unknown]
  - Vomiting [Unknown]
  - Tricuspid valve incompetence [Unknown]
  - Rheumatoid arthritis [Unknown]
  - Hyperhidrosis [Unknown]
  - Myofascial pain syndrome [Unknown]
  - Photophobia [Unknown]
  - Paranasal sinus discomfort [Unknown]
  - Migraine [Unknown]
  - Electrocardiogram T wave inversion [Unknown]
  - Deep vein thrombosis [Unknown]
  - Ischaemia [Unknown]
  - Decreased activity [Unknown]
  - Pyrexia [Not Recovered/Not Resolved]
